FAERS Safety Report 10927209 (Version 2)
Quarter: 2015Q2

REPORT INFORMATION
  Report Type: Spontaneous
  Country: ES (occurrence: ES)
  Receive Date: 20150318
  Receipt Date: 20150404
  Transmission Date: 20150821
  Serious: Yes (Other)
  Sender: FDA-Public Use
  Company Number: PHHY2015ES027710

PATIENT
  Sex: Male

DRUGS (1)
  1. GILENYA [Suspect]
     Active Substance: FINGOLIMOD HYDROCHLORIDE
     Indication: MULTIPLE SCLEROSIS
     Route: 048
     Dates: start: 20150115

REACTIONS (7)
  - Aphasia [Recovering/Resolving]
  - Central nervous system lesion [Recovering/Resolving]
  - Brain oedema [Recovering/Resolving]
  - Personality change [Recovering/Resolving]
  - Multiple sclerosis relapse [Recovering/Resolving]
  - Cognitive disorder [Recovering/Resolving]
  - Dysarthria [Recovering/Resolving]
